FAERS Safety Report 11632972 (Version 1)
Quarter: 2015Q4

REPORT INFORMATION
  Report Type: Spontaneous
  Country: AU (occurrence: None)
  Receive Date: 20151014
  Receipt Date: 20151014
  Transmission Date: 20160304
  Serious: No
  Sender: FDA-Public Use
  Company Number: None

PATIENT
  Age: 45 Year
  Sex: Male
  Weight: 45 kg

DRUGS (1)
  1. FAMVIR [Suspect]
     Active Substance: FAMCICLOVIR
     Indication: ORAL HERPES
     Dosage: 3 PILLS?ONCE ONLY?TAKEN BY MOUTH
     Route: 048
     Dates: start: 20151012, end: 20151012

REACTIONS (1)
  - Palpitations [None]

NARRATIVE: CASE EVENT DATE: 20151012
